FAERS Safety Report 16080974 (Version 1)
Quarter: 2019Q1

REPORT INFORMATION
  Report Type: Spontaneous
  Country: US (occurrence: US)
  Receive Date: 20190316
  Receipt Date: 20190316
  Transmission Date: 20190418
  Serious: Yes (Hospitalization)
  Sender: FDA-Public Use
  Company Number: US-VIVIMED-2017SP015253

PATIENT

DRUGS (3)
  1. METRONIDAZOLE. [Suspect]
     Active Substance: METRONIDAZOLE
     Indication: SINUSITIS
     Dosage: 500 MG, TID
     Route: 042
  2. LEVETIRACETAM 1A PHARMA [Concomitant]
     Active Substance: LEVETIRACETAM
     Indication: SEIZURE
     Dosage: 500 MG, UNKNOWN
     Route: 048
  3. CEFTRIAXONE. [Concomitant]
     Active Substance: CEFTRIAXONE
     Indication: SINUSITIS
     Dosage: 2 G, BID
     Route: 042

REACTIONS (10)
  - Brain abscess [None]
  - Neuropathy peripheral [Recovered/Resolved]
  - Dysmetria [Recovered/Resolved]
  - Pain in extremity [None]
  - Neurotoxicity [Recovered/Resolved]
  - Asthenia [Recovered/Resolved]
  - Gait disturbance [Recovered/Resolved]
  - Bacterial infection [None]
  - Lethargy [Recovered/Resolved]
  - Dysaesthesia [Recovered/Resolved]
